FAERS Safety Report 12873739 (Version 2)
Quarter: 2016Q4

REPORT INFORMATION
  Report Type: Report from Study
  Country: US (occurrence: US)
  Receive Date: 20161021
  Receipt Date: 20161117
  Transmission Date: 20170207
  Serious: Yes (Hospitalization, Other)
  Sender: FDA-Public Use
  Company Number: US-BAYER-2014-061582

PATIENT
  Age: 71 Year
  Sex: Female

DRUGS (4)
  1. NEXAVAR [Suspect]
     Active Substance: SORAFENIB
     Indication: HEPATIC CANCER
     Dosage: 2 X 200 MG
     Route: 048
     Dates: start: 20131002
  2. NEXAVAR [Suspect]
     Active Substance: SORAFENIB
     Indication: HEPATOCELLULAR CARCINOMA
     Dosage: 200 MG, BID FOR 4 WEEKS ON, THEN TAKE 2 WEEKS OFF
     Route: 048
     Dates: start: 20151021
  3. NEXAVAR [Suspect]
     Active Substance: SORAFENIB
     Indication: HEPATOBLASTOMA
     Dosage: 200 MG, BID FOR 28 DAYS AND 14 DAYS OFF
     Route: 048
     Dates: start: 20141103
  4. NEXAVAR [Suspect]
     Active Substance: SORAFENIB
     Indication: HEPATIC CANCER
     Dosage: 200 MG, BID FOR 4 WEEKS ON, THEN TAKE 2 WEEKS OFF
     Route: 048
     Dates: start: 20160930, end: 2016

REACTIONS (16)
  - Urinary tract infection [None]
  - Arthropathy [Not Recovered/Not Resolved]
  - Alopecia [Not Recovered/Not Resolved]
  - Oral pain [None]
  - Pain in extremity [None]
  - Activities of daily living impaired [None]
  - Haematochezia [Not Recovered/Not Resolved]
  - Oral surgery [None]
  - Limb discomfort [Not Recovered/Not Resolved]
  - Underdose [None]
  - Asthenia [None]
  - Constipation [Not Recovered/Not Resolved]
  - Oral pain [Unknown]
  - Nausea [Unknown]
  - Gastric ulcer [None]
  - Decreased appetite [Not Recovered/Not Resolved]
